FAERS Safety Report 19865874 (Version 1)
Quarter: 2021Q3

REPORT INFORMATION
  Report Type: Spontaneous
  Country: US (occurrence: US)
  Receive Date: 20210920
  Receipt Date: 20210920
  Transmission Date: 20211014
  Serious: No
  Sender: FDA-Public Use
  Company Number: None

PATIENT
  Sex: Male

DRUGS (1)
  1. HUMIRA [Suspect]
     Active Substance: ADALIMUMAB
     Indication: HIDRADENITIS
     Dosage: OTHER FREQUENCY:EVERY7DAYS ;?
     Route: 058
     Dates: start: 20210331

REACTIONS (2)
  - Skin ulcer [None]
  - Treatment failure [None]
